FAERS Safety Report 17435744 (Version 1)
Quarter: 2020Q1

REPORT INFORMATION
  Report Type: Report from Study
  Country: US (occurrence: US)
  Receive Date: 20200219
  Receipt Date: 20200219
  Transmission Date: 20200409
  Serious: Yes (Hospitalization, Other)
  Sender: FDA-Public Use
  Company Number: US-PFIZER INC-2020071974

PATIENT
  Age: 64 Year
  Sex: Female
  Weight: 55 kg

DRUGS (11)
  1. BACTRIM [Concomitant]
     Active Substance: SULFAMETHOXAZOLE\TRIMETHOPRIM
     Dosage: UNK
     Dates: end: 20181218
  2. ISAVUCONAZONIUM SULFATE [Interacting]
     Active Substance: ISAVUCONAZONIUM SULFATE
     Indication: ASPERGILLUS INFECTION
     Dosage: UNK
     Dates: start: 20180421, end: 20181221
  3. RIFABUTIN. [Suspect]
     Active Substance: RIFABUTIN
     Indication: MYCOBACTERIAL INFECTION
     Dosage: 300 MG, 1X/DAY
     Route: 048
     Dates: start: 20181128, end: 20181214
  4. BIAXIN [Concomitant]
     Active Substance: CLARITHROMYCIN
     Dosage: 500 MG, UNK
  5. TESSALON [Concomitant]
     Active Substance: BENZONATATE
     Dosage: 200 MG, UNK
  6. DELTASONE [PREDNISOLONE] [Concomitant]
     Dosage: UNK
  7. CRESTOR [Concomitant]
     Active Substance: ROSUVASTATIN CALCIUM
     Dosage: 5 MG, UNK
  8. AMOXIL [Concomitant]
     Active Substance: AMOXICILLIN
     Dosage: 500 MG, UNK
  9. DESYREL [Concomitant]
     Active Substance: TRAZODONE HYDROCHLORIDE
     Dosage: 50 MG, UNK
     Dates: end: 20181218
  10. PROGRAF [Concomitant]
     Active Substance: TACROLIMUS
     Dosage: 0.5 MG, UNK
  11. VICTOZA [Concomitant]
     Active Substance: LIRAGLUTIDE
     Dosage: 6 ML, UNK

REACTIONS (4)
  - Fatigue [Recovering/Resolving]
  - Drug interaction [Recovering/Resolving]
  - Asthenia [Recovered/Resolved]
  - Decreased appetite [Recovered/Resolved]

NARRATIVE: CASE EVENT DATE: 20180831
